FAERS Safety Report 4490049-5 (Version None)
Quarter: 2004Q4

REPORT INFORMATION
  Report Type: 
  Country: None (occurrence: None)
  Receive Date: 20041027
  Receipt Date: 20041012
  Transmission Date: 20050328
  Serious: Yes (Death, Hospitalization)
  Sender: FDA-Public Use
  Company Number: 2004-BP-0974-8RO

PATIENT
  Age: 68 Year
  Sex: Male

DRUGS (6)
  1. DEXAMETHASONE [Suspect]
     Indication: MULTIPLE MYELOMA
     Dosage: 40 MG/DAY/CYCLE, PO
     Route: 048
     Dates: start: 20020228, end: 20020317
  2. PSYLLIUM (PLANTAGO AFRA) [Concomitant]
  3. SIMVASTATIN [Concomitant]
  4. EPOETIN ALFA (EPOETIN ALFA) [Concomitant]
  5. RABEPRAZOLE SODIUM [Concomitant]
  6. TRIMETHOPRIM W/SULFAMETHOXAZOLE (BACTRIM) [Concomitant]

REACTIONS (11)
  - ANAEMIA [None]
  - ATELECTASIS [None]
  - DEHYDRATION [None]
  - GASTROINTESTINAL HAEMORRHAGE [None]
  - HERPES VIRUS INFECTION [None]
  - HYPOALBUMINAEMIA [None]
  - MALIGNANT NEOPLASM PROGRESSION [None]
  - MULTIPLE MYELOMA [None]
  - PITTING OEDEMA [None]
  - RALES [None]
  - THROMBOCYTOPENIA [None]
